FAERS Safety Report 9842900 (Version 1)
Quarter: 2014Q1

REPORT INFORMATION
  Report Type: Spontaneous
  Country: FR (occurrence: FR)
  Receive Date: 20140124
  Receipt Date: 20140124
  Transmission Date: 20141002
  Serious: Yes (Hospitalization)
  Sender: FDA-Public Use
  Company Number: FR-B.I. PHARMACEUTICALS,INC./RIDGEFIELD-2014-BI-02293FF

PATIENT
  Age: 88 Year
  Sex: Female

DRUGS (6)
  1. ATROVENT [Suspect]
     Dates: end: 2013
  2. PRETERAX [Suspect]
     Route: 048
     Dates: start: 20130926, end: 20131010
  3. DIGOXINE NATIVELLE [Suspect]
     Indication: ATRIAL FIBRILLATION
     Route: 048
     Dates: end: 201310
  4. KARDEGIC [Suspect]
     Dosage: 75 MG
     Route: 048
  5. DETENSIEL [Suspect]
     Dosage: 10 MG
     Route: 048
  6. CALTRATE [Suspect]
     Dosage: 1200 MG
     Route: 048
     Dates: end: 2013

REACTIONS (3)
  - Dizziness [Recovered/Resolved]
  - Decreased appetite [Recovered/Resolved]
  - Nausea [Recovered/Resolved]
